FAERS Safety Report 25463589 (Version 1)
Quarter: 2025Q2

REPORT INFORMATION
  Report Type: Spontaneous
  Country: US (occurrence: US)
  Receive Date: 20250620
  Receipt Date: 20250620
  Transmission Date: 20250716
  Serious: No
  Sender: REGENERON
  Company Number: US-REGENERON PHARMACEUTICALS, INC.-2025-066228

PATIENT
  Sex: Male

DRUGS (2)
  1. EYLEA HD [Suspect]
     Active Substance: AFLIBERCEPT
     Indication: Eye haemorrhage
  2. EYLEA HD [Suspect]
     Active Substance: AFLIBERCEPT
     Dosage: 8 MG, Q4W, INTO RIGHT EYE, FORMULATION: EYLEA HD (VIAL)

REACTIONS (1)
  - Off label use [Unknown]
